FAERS Safety Report 22244890 (Version 1)
Quarter: 2023Q2

REPORT INFORMATION
  Report Type: Spontaneous
  Country: FI (occurrence: None)
  Receive Date: 20230424
  Receipt Date: 20230424
  Transmission Date: 20230722
  Serious: Yes (Other)
  Sender: FDA-Public Use
  Company Number: FI-Merck LLC-9396923

PATIENT
  Age: 75 Year
  Sex: Male

DRUGS (6)
  1. AVELUMAB [Suspect]
     Active Substance: AVELUMAB
     Indication: Neuroendocrine carcinoma of the skin
     Dates: start: 202112
  2. AVELUMAB [Suspect]
     Active Substance: AVELUMAB
     Dosage: 2 CYCLES (1ST AVELUMAB TREATMENT IN BEGINNING OF JAN AND THE 2ND MID JAN)
     Dates: start: 202201
  3. AVELUMAB [Suspect]
     Active Substance: AVELUMAB
     Dosage: BEGINNING OF FEB
     Dates: start: 202202
  4. AVELUMAB [Suspect]
     Active Substance: AVELUMAB
     Dosage: 1ST AVELUMAB TREATMENT IN BEGINNING OF MAR, THE 2ND MID-MAR AND THE 3RD END OF MAR
     Dates: start: 202203
  5. AVELUMAB [Suspect]
     Active Substance: AVELUMAB
     Dosage: 1ST IN MID-APR AND 2ND END OF APR
     Dates: start: 202204
  6. AVELUMAB [Suspect]
     Active Substance: AVELUMAB
     Dosage: ONE AVELUMAB TREATMENT MID-MAY
     Dates: start: 202205

REACTIONS (2)
  - Acute myocardial infarction [Recovered/Resolved]
  - Atrial fibrillation [Unknown]
